FAERS Safety Report 18253454 (Version 1)
Quarter: 2020Q3

REPORT INFORMATION
  Report Type: Spontaneous
  Country: US (occurrence: US)
  Receive Date: 20200910
  Receipt Date: 20200910
  Transmission Date: 20201103
  Serious: Yes (Hospitalization, Disabling, Other)
  Sender: FDA-Public Use
  Company Number: US-PURDUE-USA-2020-0165408

PATIENT
  Age: 59 Year
  Sex: Male

DRUGS (8)
  1. OXYCONTIN [Suspect]
     Active Substance: OXYCODONE HYDROCHLORIDE
     Indication: BREAKTHROUGH PAIN
     Dosage: 60 MG, UNK
     Route: 048
     Dates: start: 1999, end: 2017
  2. ZOLOFT [Concomitant]
     Active Substance: SERTRALINE HYDROCHLORIDE
     Indication: PRODUCT USED FOR UNKNOWN INDICATION
     Dosage: 100 MG, UNK
     Route: 048
  3. ENDOCET [Suspect]
     Active Substance: ACETAMINOPHEN\OXYCODONE HYDROCHLORIDE
     Indication: BREAKTHROUGH PAIN
     Dosage: 10/325 MG
     Route: 048
  4. MS CONTIN [Suspect]
     Active Substance: MORPHINE SULFATE
     Indication: PRODUCT USED FOR UNKNOWN INDICATION
     Dosage: UNKNOWN DOSE
     Route: 048
  5. OXYCONTIN [Suspect]
     Active Substance: OXYCODONE HYDROCHLORIDE
     Dosage: 40 UNK, UNK
     Route: 048
  6. OXYCODONE/ ACETAMINOPHEN TABLETS [Suspect]
     Active Substance: ACETAMINOPHEN\OXYCODONE HYDROCHLORIDE
     Indication: PRODUCT USED FOR UNKNOWN INDICATION
     Dosage: UNKNOWN DOSE
     Route: 048
  7. ENDOCET [Suspect]
     Active Substance: ACETAMINOPHEN\OXYCODONE HYDROCHLORIDE
     Dosage: 10/650 MG, UNK
     Route: 048
  8. PERCOCET                           /00446701/ [Suspect]
     Active Substance: ACETAMINOPHEN\OXYCODONE HYDROCHLORIDE\OXYCODONE TEREPHTHALATE
     Indication: PRODUCT USED FOR UNKNOWN INDICATION
     Dosage: 10/650 MG, UNK
     Route: 048

REACTIONS (22)
  - Drug dependence [Unknown]
  - Disability [Not Recovered/Not Resolved]
  - Emotional distress [Unknown]
  - Osteoarthritis [Unknown]
  - Hyperglycaemia [Unknown]
  - Proctalgia [Unknown]
  - Arthralgia [Unknown]
  - Tobacco user [Not Recovered/Not Resolved]
  - Diabetes mellitus inadequate control [None]
  - Knee arthroplasty [Unknown]
  - Suicide attempt [Unknown]
  - Ureterolithiasis [Recovered/Resolved]
  - Cystitis [Unknown]
  - Pain [Unknown]
  - Bronchitis [Unknown]
  - Tooth extraction [Unknown]
  - Overdose [Unknown]
  - Neoplasm [Unknown]
  - Dermatophytosis [Unknown]
  - Haematochezia [Unknown]
  - Major depression [Unknown]
  - Constipation [Not Recovered/Not Resolved]

NARRATIVE: CASE EVENT DATE: 2010
